FAERS Safety Report 6130118-7 (Version None)
Quarter: 2009Q1

REPORT INFORMATION
  Report Type: 
  Country: None (occurrence: None)
  Receive Date: 20090324
  Receipt Date: 20090324
  Transmission Date: 20090719
  Serious: Yes (Hospitalization)
  Sender: FDA-Public Use
  Company Number: PHHO2003AU14321

PATIENT
  Sex: Female
  Weight: 73 kg

DRUGS (2)
  1. CGS 20267 T30748+ [Suspect]
     Indication: BREAST CANCER
     Dosage: 2.5 MG, QD
     Route: 048
     Dates: start: 19990420
  2. RISEDRONATE SODIUM [Concomitant]

REACTIONS (6)
  - BACK PAIN [None]
  - FRACTURED SACRUM [None]
  - LUMBAR VERTEBRAL FRACTURE [None]
  - MOBILITY DECREASED [None]
  - OSTEOPOROSIS [None]
  - THORACIC VERTEBRAL FRACTURE [None]
